FAERS Safety Report 26202911 (Version 1)
Quarter: 2025Q4

REPORT INFORMATION
  Report Type: Spontaneous
  Country: EU (occurrence: EU)
  Receive Date: 20251226
  Receipt Date: 20251226
  Transmission Date: 20260117
  Serious: Yes (Death, Other)
  Sender: BRISTOL-MYERS SQUIBB COMPANY
  Company Number: EU-BRISTOL-MYERS SQUIBB COMPANY-2025-123237

PATIENT
  Age: 54 Year
  Sex: Male
  Weight: 55 kg

DRUGS (2)
  1. OPDIVO [Suspect]
     Active Substance: NIVOLUMAB
     Indication: Pleural mesothelioma malignant
     Dosage: 360 MG EVERY 3 WEEKS BY INTRAVENOUS ROUTE
     Route: 042
  2. YERVOY [Suspect]
     Active Substance: IPILIMUMAB
     Indication: Pleural mesothelioma malignant
     Dosage: 55 MG EVERY 6 WEEKS BY INTRAVENOUS ROUTE
     Route: 042

REACTIONS (2)
  - Off label use [Unknown]
  - Death [Fatal]
